FAERS Safety Report 9991604 (Version 1)
Quarter: 2014Q1

REPORT INFORMATION
  Report Type: Spontaneous
  Country: US (occurrence: US)
  Receive Date: 20140310
  Receipt Date: 20140310
  Transmission Date: 20141002
  Serious: Yes (Other)
  Sender: FDA-Public Use
  Company Number: US-LUNDBECK-DKLU1094804

PATIENT
  Age: 2 Year
  Sex: Female

DRUGS (7)
  1. ONFI (ORAL SUSPENSION) [Suspect]
     Indication: PARTIAL SEIZURES
     Route: 048
     Dates: start: 20130905
  2. ONFI (ORAL SUSPENSION) [Suspect]
     Indication: CONVULSION
     Route: 048
     Dates: start: 20130916
  3. ONFI (ORAL SUSPENSION) [Suspect]
     Route: 048
     Dates: start: 20130916
  4. ONFI [Suspect]
     Indication: PARTIAL SEIZURES
     Route: 048
     Dates: start: 2012, end: 20130904
  5. ONFI [Suspect]
     Route: 048
     Dates: start: 20131001
  6. KEPPRA [Concomitant]
     Indication: PARTIAL SEIZURES
     Route: 048
  7. LEVOTHYROXINE [Concomitant]
     Indication: HYPOTHYROIDISM
     Route: 048

REACTIONS (2)
  - Convulsion [Recovered/Resolved]
  - Convulsion [Unknown]
